FAERS Safety Report 15920648 (Version 1)
Quarter: 2019Q1

REPORT INFORMATION
  Report Type: Spontaneous
  Country: IR (occurrence: IR)
  Receive Date: 20190205
  Receipt Date: 20190205
  Transmission Date: 20190417
  Serious: Yes (Hospitalization)
  Sender: FDA-Public Use
  Company Number: IR-MYLANLABS-2019M1008159

PATIENT
  Age: 21 Year
  Sex: Female

DRUGS (10)
  1. FLUPENTIXOL DECANOATE [Suspect]
     Active Substance: FLUPENTIXOL DECANOATE
     Indication: MANIA
     Dosage: MONTHLY INJECTIONS
     Route: 065
  2. BIPERIDEN [Suspect]
     Active Substance: BIPERIDEN
     Indication: MANIA
     Dosage: UP TO 4MG/DAY
     Route: 065
  3. ATROPINE. [Suspect]
     Active Substance: ATROPINE
     Indication: ELECTROCONVULSIVE THERAPY
  4. LITHIUM. [Suspect]
     Active Substance: LITHIUM
     Indication: MANIA
     Dosage: UP TO 1200MG/DAY
     Route: 065
  5. QUETIAPINE. [Suspect]
     Active Substance: QUETIAPINE
     Indication: MANIA
     Dosage: UP TO 600MG/DAY
     Route: 065
  6. SUCCINYL CHOLINE [Suspect]
     Active Substance: SUCCINYLCHOLINE
     Indication: INDUCTION OF ANAESTHESIA
     Route: 042
  7. SUCCINYL CHOLINE [Suspect]
     Active Substance: SUCCINYLCHOLINE
     Indication: ELECTROCONVULSIVE THERAPY
  8. THIOPENTAL SODIUM. [Suspect]
     Active Substance: THIOPENTAL SODIUM
     Indication: INDUCTION OF ANAESTHESIA
     Route: 042
  9. THIOPENTAL SODIUM. [Suspect]
     Active Substance: THIOPENTAL SODIUM
     Indication: ELECTROCONVULSIVE THERAPY
  10. ATROPINE. [Suspect]
     Active Substance: ATROPINE
     Indication: INDUCTION OF ANAESTHESIA
     Route: 042

REACTIONS (3)
  - Drug ineffective [Unknown]
  - Paradoxical drug reaction [Recovered/Resolved]
  - Catatonia [Recovered/Resolved]
